FAERS Safety Report 9994575 (Version 2)
Quarter: 2014Q1

REPORT INFORMATION
  Report Type: Report from Study
  Country: CA (occurrence: CA)
  Receive Date: 20140311
  Receipt Date: 20140324
  Transmission Date: 20141002
  Serious: Yes (Death)
  Sender: FDA-Public Use
  Company Number: CA-JNJFOC-20140304156

PATIENT
  Sex: Female

DRUGS (4)
  1. TYLENOL EXTRA STRENGTH [Suspect]
     Route: 065
  2. TYLENOL EXTRA STRENGTH [Suspect]
     Indication: PRODUCT USED FOR UNKNOWN INDICATION
     Route: 065
     Dates: start: 20031001, end: 20031015
  3. ETHANOL [Concomitant]
     Indication: PRODUCT USED FOR UNKNOWN INDICATION
     Route: 065
  4. GRAVOL [Concomitant]
     Indication: PRODUCT USED FOR UNKNOWN INDICATION
     Route: 065

REACTIONS (9)
  - Hepatic failure [Fatal]
  - Renal failure acute [Fatal]
  - Sepsis [Fatal]
  - Drug abuse [Fatal]
  - Alcohol abuse [Fatal]
  - Pneumonia pneumococcal [Fatal]
  - Pancreatitis [Fatal]
  - Chronic obstructive pulmonary disease [Fatal]
  - Toxicity to various agents [Fatal]
